FAERS Safety Report 5871432-X (Version None)
Quarter: 2008Q3

REPORT INFORMATION
  Report Type: 
  Country: None (occurrence: None)
  Receive Date: 20080905
  Receipt Date: 20080829
  Transmission Date: 20090109
  Serious: Yes (Other)
  Sender: FDA-Public Use
  Company Number: PHHY2008CO19611

PATIENT
  Age: 68 Year
  Sex: Female

DRUGS (1)
  1. ACLASTA [Suspect]
     Indication: OSTEOPOROSIS
     Dosage: 5MG/100ML PER YEAR

REACTIONS (4)
  - GENERALISED OEDEMA [None]
  - GLAUCOMA [None]
  - OCULAR DISCOMFORT [None]
  - VOMITING [None]
